FAERS Safety Report 7342649-2 (Version None)
Quarter: 2011Q1

REPORT INFORMATION
  Report Type: 
  Country: None (occurrence: None)
  Receive Date: 20110310
  Receipt Date: 20110307
  Transmission Date: 20110831
  Serious: Yes (Hospitalization)
  Sender: FDA-Public Use
  Company Number: US-BAYER-2011-021224

PATIENT
  Sex: Female

DRUGS (1)
  1. YAZ [Suspect]
     Dosage: UNK
     Route: 048
     Dates: start: 20080728, end: 20090305

REACTIONS (4)
  - CHOLELITHIASIS [None]
  - EMOTIONAL DISTRESS [None]
  - CHOLECYSTITIS [None]
  - PAIN [None]
